FAERS Safety Report 14696180 (Version 1)
Quarter: 2018Q1

REPORT INFORMATION
  Report Type: Spontaneous
  Country: US (occurrence: US)
  Receive Date: 20180329
  Receipt Date: 20180329
  Transmission Date: 20180509
  Serious: No
  Sender: FDA-Public Use
  Company Number: US-SA-2017SA220492

PATIENT
  Age: 70 Year
  Sex: Female

DRUGS (1)
  1. ALLEGRA D-12 HOUR [Suspect]
     Active Substance: FEXOFENADINE HYDROCHLORIDE\PSEUDOEPHEDRINE HYDROCHLORIDE
     Indication: SINUSITIS
     Dosage: DOSE AS 60MG/120MG
     Route: 048
     Dates: start: 20171105

REACTIONS (1)
  - Erythema [Unknown]
